FAERS Safety Report 6827056-0 (Version None)
Quarter: 2010Q3

REPORT INFORMATION
  Report Type: 
  Country: None (occurrence: None)
  Receive Date: 20100709
  Receipt Date: 20100706
  Transmission Date: 20110219
  Serious: Yes (Other)
  Sender: FDA-Public Use
  Company Number: CA-MERCK-1007USA00481

PATIENT
  Age: 46 Year
  Sex: Male

DRUGS (15)
  1. ISENTRESS [Suspect]
     Route: 048
  2. LAMIVUDINE [Suspect]
     Route: 048
  3. ACYCLOVIR [Concomitant]
     Route: 065
  4. FENOFIBRATE [Concomitant]
     Route: 065
  5. FOLIC ACID [Concomitant]
     Route: 065
  6. FUZEON [Suspect]
     Route: 058
  7. HYDROXYZINE [Concomitant]
     Route: 065
  8. INTELENCE [Suspect]
     Route: 048
  9. VITAMINS (UNSPECIFIED) [Concomitant]
     Route: 065
  10. TEMAZEPAM [Concomitant]
     Route: 065
  11. SULFAMETHOXAZOLE AND TRIMETHOPRIM [Concomitant]
     Route: 065
  12. VIREAD [Suspect]
     Route: 048
  13. VITAMIN D (UNSPECIFIED) [Concomitant]
     Route: 065
  14. VITAMIN E [Concomitant]
     Route: 065
  15. ZOPICLONE [Concomitant]
     Route: 065

REACTIONS (5)
  - ALANINE AMINOTRANSFERASE INCREASED [None]
  - ASPARTATE AMINOTRANSFERASE INCREASED [None]
  - HEPATIC STEATOSIS [None]
  - LIVER DISORDER [None]
  - LYMPHADENOPATHY [None]
